FAERS Safety Report 6912595-4 (Version None)
Quarter: 2010Q3

REPORT INFORMATION
  Report Type: 
  Country: None (occurrence: None)
  Receive Date: 20100806
  Receipt Date: 20080828
  Transmission Date: 20110219
  Serious: Yes (Other)
  Sender: FDA-Public Use
  Company Number: US-PFIZER INC-2008072842

PATIENT
  Sex: Female

DRUGS (4)
  1. DILANTIN [Suspect]
     Indication: CONVULSION
     Dates: start: 19680101
  2. DILANTIN [Suspect]
     Indication: CONVULSION
     Dates: start: 19680101
  3. PHENYTOIN SODIUM [Suspect]
     Indication: CONVULSION
  4. PRIMIDONE [Concomitant]

REACTIONS (4)
  - CONVULSION [None]
  - DRUG INEFFECTIVE [None]
  - FIBROMYALGIA [None]
  - PAIN [None]
